FAERS Safety Report 25526455 (Version 2)
Quarter: 2025Q3

REPORT INFORMATION
  Report Type: Spontaneous
  Country: CN (occurrence: CN)
  Receive Date: 20250707
  Receipt Date: 20250718
  Transmission Date: 20251020
  Serious: Yes (Other)
  Sender: NOVARTIS
  Company Number: CN-002147023-NVSC2025CN107793

PATIENT
  Age: 61 Year
  Sex: Female

DRUGS (3)
  1. FEMARA [Suspect]
     Active Substance: LETROZOLE
     Indication: Breast cancer
     Route: 048
     Dates: start: 201506, end: 202412
  2. FEMARA [Suspect]
     Active Substance: LETROZOLE
     Route: 048
     Dates: start: 20250709
  3. EUTHYROX [Concomitant]
     Active Substance: LEVOTHYROXINE SODIUM
     Indication: Hypothyroidism
     Route: 065

REACTIONS (7)
  - Carcinoembryonic antigen increased [Unknown]
  - Low density lipoprotein increased [Unknown]
  - Insomnia [Recovering/Resolving]
  - Night sweats [Recovering/Resolving]
  - Bone demineralisation [Unknown]
  - Asthenia [Recovering/Resolving]
  - Depressed mood [Recovering/Resolving]

NARRATIVE: CASE EVENT DATE: 20250601
